FAERS Safety Report 6306123-4 (Version None)
Quarter: 2009Q3

REPORT INFORMATION
  Report Type: 
  Country: None (occurrence: None)
  Receive Date: 20090810
  Receipt Date: 20090804
  Transmission Date: 20100115
  Serious: Yes (Other)
  Sender: FDA-Public Use
  Company Number: 09US002986

PATIENT
  Age: 65 Year
  Sex: Female

DRUGS (3)
  1. TROLAMINE SALICYLATE 10% 251 (TROLAMINE SALICYLATE) CREAM [Suspect]
     Indication: ARTHRITIS
     Dosage: 1 APPLICATION, QD, TOPICAL
     Route: 061
     Dates: start: 20090724, end: 20090731
  2. MENTHOL CREAM, UNSPECIFIED (MENTHOL CREAM, UNSPECIFIED) [Suspect]
     Indication: ARTHRITIS
     Dosage: TOPICAL
     Route: 061
  3. AVALIDE [Concomitant]

REACTIONS (7)
  - APPLICATION SITE IRRITATION [None]
  - BLOOD PRESSURE INCREASED [None]
  - CONDITION AGGRAVATED [None]
  - DRUG ADMINISTRATION ERROR [None]
  - HEADACHE [None]
  - NAUSEA [None]
  - WRONG TECHNIQUE IN DRUG USAGE PROCESS [None]
